FAERS Safety Report 10206768 (Version 1)
Quarter: 2014Q2

REPORT INFORMATION
  Report Type: Report from Study
  Country: GB (occurrence: GB)
  Receive Date: 20140530
  Receipt Date: 20140530
  Transmission Date: 20141212
  Serious: Yes (Other)
  Sender: FDA-Public Use
  Company Number: GB-AMGEN-GBRCT2014039941

PATIENT
  Age: 75 Year
  Sex: Male
  Weight: 107 kg

DRUGS (2)
  1. ETANERCEPT [Suspect]
     Indication: RHEUMATOID ARTHRITIS
     Dosage: 25 MG, 2 TIMES/WK
     Route: 065
     Dates: start: 20050120
  2. METHOTREXATE [Concomitant]
     Dosage: UNK

REACTIONS (1)
  - Pulmonary mass [Unknown]
